FAERS Safety Report 22244618 (Version 1)
Quarter: 2023Q2

REPORT INFORMATION
  Report Type: Spontaneous
  Country: US (occurrence: None)
  Receive Date: 20230422
  Receipt Date: 20230422
  Transmission Date: 20230721
  Serious: Yes (Other)
  Sender: FDA-Public Use
  Company Number: None

PATIENT
  Age: 41 Year
  Sex: Female

DRUGS (1)
  1. TACROLIMUS 0.1% [Suspect]
     Active Substance: TACROLIMUS
     Indication: Rosacea
     Dosage: FREQUENCY : TWICE A DAY;?
     Route: 061
     Dates: start: 20230413, end: 20230421

REACTIONS (6)
  - Administration site irritation [None]
  - Erythema [None]
  - Paraesthesia oral [None]
  - Muscle twitching [None]
  - Pruritus [None]
  - Urticaria [None]

NARRATIVE: CASE EVENT DATE: 20230420
